FAERS Safety Report 7135946-7 (Version None)
Quarter: 2010Q4

REPORT INFORMATION
  Report Type: 
  Country: None (occurrence: None)
  Receive Date: 20101204
  Receipt Date: 20100817
  Transmission Date: 20110411
  Serious: Yes (Other)
  Sender: FDA-Public Use
  Company Number: US-BAYER-201030814NA

PATIENT

DRUGS (3)
  1. AVELOX [Suspect]
     Route: 048
  2. AVELOX [Suspect]
     Route: 042
  3. ALBUTEROL [Concomitant]
     Route: 065

REACTIONS (4)
  - BACK PAIN [None]
  - HEPATIC FUNCTION ABNORMAL [None]
  - HYPOAESTHESIA [None]
  - PARAESTHESIA [None]
